FAERS Safety Report 24339779 (Version 3)
Quarter: 2024Q4

REPORT INFORMATION
  Report Type: Report from Study
  Country: US (occurrence: US)
  Receive Date: 20240919
  Receipt Date: 20241002
  Transmission Date: 20250115
  Serious: Yes (Hospitalization)
  Sender: AMGEN
  Company Number: US-AMGEN-USASP2024134613

PATIENT
  Age: 82 Year
  Sex: Female

DRUGS (10)
  1. TEPEZZA [Suspect]
     Active Substance: TEPROTUMUMAB-TRBW
     Indication: Endocrine ophthalmopathy
     Dosage: 10 MILLIGRAM/KILOGRAM, Q3WK, (FIRST DOSE)
     Route: 042
     Dates: start: 20240221
  2. TEPEZZA [Suspect]
     Active Substance: TEPROTUMUMAB-TRBW
     Dosage: 20 MILLIGRAM/KILOGRAM, Q3WK (DOSES 2-7)
     Route: 042
     Dates: start: 20240323
  3. TEPEZZA [Suspect]
     Active Substance: TEPROTUMUMAB-TRBW
     Dosage: 20 MILLIGRAM/KILOGRAM, Q3WK, THIRD INFUSION
     Route: 042
     Dates: start: 20240413
  4. TEPEZZA [Suspect]
     Active Substance: TEPROTUMUMAB-TRBW
     Dosage: 20 MILLIGRAM/KILOGRAM, Q3WK, FOURTH INFUSION
     Route: 042
     Dates: start: 2024
  5. TEPEZZA [Suspect]
     Active Substance: TEPROTUMUMAB-TRBW
     Dosage: 20 MILLIGRAM/KILOGRAM, Q3WK  (SIXTH INFUSION)
     Route: 042
     Dates: start: 2024
  6. TEPEZZA [Suspect]
     Active Substance: TEPROTUMUMAB-TRBW
     Dosage: 20 MILLIGRAM, QMO (SEVENTH INFUSION)
     Route: 042
     Dates: start: 20240724, end: 20240724
  7. SYNTHROID [Concomitant]
     Active Substance: LEVOTHYROXINE SODIUM
     Indication: Thyroid disorder
     Dosage: UNK
     Route: 065
  8. OMEPRAZOLE [Concomitant]
     Active Substance: OMEPRAZOLE
     Indication: Gastrooesophageal reflux disease
     Route: 065
  9. TYLENOL [Concomitant]
     Active Substance: ACETAMINOPHEN
     Dosage: UNK
     Route: 065
  10. MECLIZINE [Concomitant]
     Active Substance: MECLIZINE HYDROCHLORIDE
     Indication: Dizziness
     Dosage: UNK
     Route: 065

REACTIONS (22)
  - White blood cell count increased [Unknown]
  - Urinary tract infection [Unknown]
  - Dry mouth [Unknown]
  - Dysacusis [Not Recovered/Not Resolved]
  - Hypoacusis [Unknown]
  - Fatigue [Unknown]
  - Eye pain [Unknown]
  - Dry skin [Unknown]
  - Ear dryness [Recovering/Resolving]
  - Headache [Not Recovered/Not Resolved]
  - Dry throat [Recovering/Resolving]
  - Balance disorder [Not Recovered/Not Resolved]
  - Dry eye [Unknown]
  - Feeling abnormal [Unknown]
  - Confusional state [Unknown]
  - Dizziness [Not Recovered/Not Resolved]
  - Ocular discomfort [Unknown]
  - Depressed mood [Unknown]
  - Malaise [Unknown]
  - Off label use [Unknown]
  - Nausea [Not Recovered/Not Resolved]
  - Anaemia [Unknown]

NARRATIVE: CASE EVENT DATE: 20240101
